FAERS Safety Report 6805413-6 (Version None)
Quarter: 2010Q2

REPORT INFORMATION
  Report Type: 
  Country: None (occurrence: None)
  Receive Date: 20100628
  Receipt Date: 20071214
  Transmission Date: 20101027
  Serious: No
  Sender: FDA-Public Use
  Company Number: US-PFIZER INC-2007092517

PATIENT
  Sex: Female
  Weight: 63.5 kg

DRUGS (4)
  1. GEODON [Suspect]
     Indication: SCHIZOAFFECTIVE DISORDER
     Route: 048
     Dates: start: 20040101, end: 20060301
  2. TRAZODONE HYDROCHLORIDE [Concomitant]
  3. STRATTERA [Concomitant]
  4. MINOCYCLINE [Concomitant]

REACTIONS (2)
  - DYSTONIA [None]
  - MUSCLE SPASMS [None]
